FAERS Safety Report 16570658 (Version 1)
Quarter: 2019Q3

REPORT INFORMATION
  Report Type: Spontaneous
  Country: US (occurrence: US)
  Receive Date: 20190712
  Receipt Date: 20190712
  Transmission Date: 20191004
  Serious: Yes (Hospitalization)
  Sender: FDA-Public Use
  Company Number: None

PATIENT
  Sex: Female

DRUGS (5)
  1. LEVETIRACETA [Concomitant]
  2. PANTOPRAZOLE [Concomitant]
     Active Substance: PANTOPRAZOLE
  3. CLOBAZAM. [Concomitant]
     Active Substance: CLOBAZAM
  4. NYSTATIN. [Concomitant]
     Active Substance: NYSTATIN
  5. CAPECITABINE. [Suspect]
     Active Substance: CAPECITABINE
     Indication: COLON CANCER
     Dosage: ?          OTHER FREQUENCY:BID FOR 7/14 DAYS;?
     Route: 048
     Dates: start: 20190206

REACTIONS (1)
  - Drug ineffective [None]
